FAERS Safety Report 20705270 (Version 2)
Quarter: 2022Q2

REPORT INFORMATION
  Report Type: Spontaneous
  Country: JP (occurrence: JP)
  Receive Date: 20220413
  Receipt Date: 20220518
  Transmission Date: 20220720
  Serious: No
  Sender: FDA-Public Use
  Company Number: JP-Eisai-202200317_HAL_P_1

PATIENT
  Age: 72 Year
  Sex: Female

DRUGS (1)
  1. HALAVEN [Suspect]
     Active Substance: ERIBULIN MESYLATE
     Indication: Breast cancer recurrent
     Route: 042

REACTIONS (1)
  - Pneumonia [Unknown]
